FAERS Safety Report 4821899-0 (Version None)
Quarter: 2005Q4

REPORT INFORMATION
  Report Type: 
  Country: None (occurrence: None)
  Receive Date: 20051107
  Receipt Date: 20051012
  Transmission Date: 20060501
  Serious: Yes (Hospitalization)
  Sender: FDA-Public Use
  Company Number: US-ROCHE-421202

PATIENT
  Age: 48 Year
  Sex: Female
  Weight: 70.3 kg

DRUGS (10)
  1. PEG-INTERFERON ALFA 2A (RO 25-8310) [Suspect]
     Dosage: FORM: INJECTABLE SOLUTION.
     Route: 058
     Dates: start: 20050114, end: 20050922
  2. RIBAVIRIN [Suspect]
     Route: 048
     Dates: start: 20050114, end: 20050922
  3. SYNTHROID [Concomitant]
     Indication: HYPOTHYROIDISM
     Route: 048
     Dates: start: 19920615
  4. CALCITRIOL [Concomitant]
     Dosage: 1ST THERAPY FROM 1992 TO 22 SEPTEMBER 2005, RESTARTED IN OCTOBER 2005, THERAPY ONGOING: UNKNOWN.
     Route: 048
     Dates: start: 19920615
  5. CALCIUM GLUCONATE [Concomitant]
     Dosage: 1ST THERAPY STARTED IN 1992, STOPPED ON 22 SEPTEMBER 2005. RESTARTED IN OCTOBER 2005. THERAPY ONGOI+
     Route: 048
     Dates: start: 19920615
  6. TYLENOL (CAPLET) [Concomitant]
     Indication: ANALGESIC THERAPY
     Route: 048
     Dates: start: 20050123, end: 20050922
  7. ELOCON [Concomitant]
     Indication: PSORIASIS
     Route: 061
     Dates: start: 20050407, end: 20050922
  8. PRENATAL VITAMINS [Concomitant]
     Route: 048
     Dates: start: 20050817, end: 20050922
  9. LUNESTA [Concomitant]
     Indication: INSOMNIA
     Dosage: AT BEDTIME.
     Route: 048
     Dates: start: 20050817, end: 20050922
  10. PROVIGIL [Concomitant]
     Route: 048
     Dates: start: 20050919, end: 20050922

REACTIONS (5)
  - DEHYDRATION [None]
  - HAEMOGLOBIN DECREASED [None]
  - HYPERCALCAEMIA [None]
  - RENAL FAILURE ACUTE [None]
  - VIRAL INFECTION [None]
